FAERS Safety Report 18481284 (Version 3)
Quarter: 2022Q4

REPORT INFORMATION
  Report Type: Spontaneous
  Country: FR (occurrence: FR)
  Receive Date: 20201109
  Receipt Date: 20221013
  Transmission Date: 20230113
  Serious: Yes (Life-Threatening, Hospitalization)
  Sender: FDA-Public Use
  Company Number: None

PATIENT
  Age: 7 Year
  Sex: Female
  Weight: 18.75 kg

DRUGS (2)
  1. EXJADE [Suspect]
     Active Substance: DEFERASIROX
     Indication: Haemochromatosis
     Dosage: 1 DF, QD
     Route: 048
     Dates: start: 201911, end: 202006
  2. EXJADE [Suspect]
     Active Substance: DEFERASIROX
     Dosage: 540 MG, QD
     Route: 048
     Dates: start: 202006, end: 20201021

REACTIONS (2)
  - Hyperammonaemic encephalopathy [Recovered/Resolved]
  - Hepatic failure [Recovered/Resolved]

NARRATIVE: CASE EVENT DATE: 20201021
